FAERS Safety Report 6665903-6 (Version None)
Quarter: 2010Q2

REPORT INFORMATION
  Report Type: 
  Country: None (occurrence: None)
  Receive Date: 20100402
  Receipt Date: 20100323
  Transmission Date: 20101027
  Serious: Yes (Other)
  Sender: FDA-Public Use
  Company Number: US-RB-005311-10

PATIENT
  Age: 32 Year
  Sex: Female

DRUGS (4)
  1. SUBOXONE [Suspect]
     Route: 060
     Dates: start: 20090701
  2. XANAX [Suspect]
     Indication: ANXIETY
     Dosage: DOSING DETAILS UNKNOWN
     Route: 065
     Dates: end: 20090801
  3. TRILEPTAL [Suspect]
     Dosage: DOSING DETAILS UNKNOWN
     Route: 065
     Dates: start: 20090801, end: 20090901
  4. VALIUM [Concomitant]
     Indication: ANXIETY
     Route: 065
     Dates: start: 20090801

REACTIONS (3)
  - CONVULSION [None]
  - RASH [None]
  - TOOTH FRACTURE [None]
